FAERS Safety Report 21033608 (Version 3)
Quarter: 2022Q3

REPORT INFORMATION
  Report Type: Spontaneous
  Country: CA (occurrence: CA)
  Receive Date: 20220701
  Receipt Date: 20220909
  Transmission Date: 20221027
  Serious: Yes (Other)
  Sender: FDA-Public Use
  Company Number: CA-PFIZER INC-202200907975

PATIENT
  Age: 61 Year
  Sex: Female

DRUGS (3)
  1. METHOTREXATE SODIUM [Suspect]
     Active Substance: METHOTREXATE SODIUM
     Dosage: 1 DF
     Dates: start: 2014
  2. LEUCOVORIN [Concomitant]
     Active Substance: LEUCOVORIN
     Dosage: 1 DF
     Dates: start: 2014
  3. ORENCIA [Concomitant]
     Active Substance: ABATACEPT
     Dosage: 1 DF (STATUS OF THIS TREATMENT ONCE INFLECTRA IS STARTED TO BE CONFIRMED BY MD)
     Dates: start: 2014

REACTIONS (13)
  - Crohn^s disease [Unknown]
  - Haematochezia [Unknown]
  - Abscess [Unknown]
  - Abdominal pain [Unknown]
  - Abdominal discomfort [Unknown]
  - Fatigue [Unknown]
  - Decreased appetite [Unknown]
  - Asthenia [Unknown]
  - Diarrhoea [Unknown]
  - Flatulence [Unknown]
  - Abdominal distension [Unknown]
  - Insomnia [Unknown]
  - Bowel movement irregularity [Unknown]
